FAERS Safety Report 5086147-8 (Version None)
Quarter: 2006Q3

REPORT INFORMATION
  Report Type: 
  Country: None (occurrence: None)
  Receive Date: 20060818
  Receipt Date: 20060811
  Transmission Date: 20061208
  Serious: Yes (Hospitalization)
  Sender: FDA-Public Use
  Company Number: 2006091649

PATIENT
  Age: 50 Year
  Sex: Female
  Weight: 53 kg

DRUGS (9)
  1. LIPITOR [Suspect]
     Indication: HYPERCHOLESTEROLAEMIA
     Dosage: 10 MG (10 MG, DAILY), ORAL
     Route: 048
     Dates: start: 20060602, end: 20060625
  2. MAGNESIUM OXIDE (MAGNESIUM OXIDE) [Concomitant]
  3. HALCION [Concomitant]
  4. SCOPOLAMINE (HYOSCINE) [Concomitant]
  5. LAC B (LACTOBACILLUS BIFIDUS, LYOPHILIZED) [Concomitant]
  6. ULBAN-A (SUCRALFATE) [Concomitant]
  7. LEVOFLOXACIN [Concomitant]
  8. LANSOPRAZOLE [Concomitant]
  9. EXACIN (ISEPAMICIN SULFATE) [Concomitant]

REACTIONS (11)
  - ABDOMINAL PAIN LOWER [None]
  - ALANINE AMINOTRANSFERASE INCREASED [None]
  - ANOREXIA [None]
  - ASPARTATE AMINOTRANSFERASE INCREASED [None]
  - BLOOD ALKALINE PHOSPHATASE INCREASED [None]
  - BLOOD LACTATE DEHYDROGENASE INCREASED [None]
  - DISEASE RECURRENCE [None]
  - DIVERTICULITIS [None]
  - GAMMA-GLUTAMYLTRANSFERASE INCREASED [None]
  - HEPATIC FUNCTION ABNORMAL [None]
  - MALAISE [None]
